FAERS Safety Report 21699847 (Version 1)
Quarter: 2022Q4

REPORT INFORMATION
  Report Type: Spontaneous
  Country: ES (occurrence: ES)
  Receive Date: 20221208
  Receipt Date: 20221208
  Transmission Date: 20230112
  Serious: Yes (Hospitalization, Other)
  Sender: FDA-Public Use
  Company Number: None

PATIENT
  Age: 64 Year
  Sex: Male

DRUGS (6)
  1. AMLODIPINE [Suspect]
     Active Substance: AMLODIPINE BESYLATE
     Indication: Hypertension
     Dosage: STRENGTH: 5MG, 0-0-1
  2. OMEPRAZOLE [Concomitant]
     Active Substance: OMEPRAZOLE
     Dosage: STRENGTH: 20MG, 1-0-0
  3. FUROSEMIDE [Concomitant]
     Active Substance: FUROSEMIDE
     Dosage: STRENGTH: 40 MG, 1-0-0
  4. INSULIN GLARGINE [Concomitant]
     Active Substance: INSULIN GLARGINE
     Dosage: 26-0-0
  5. ACENOCOUMAROL [Concomitant]
     Active Substance: ACENOCOUMAROL
     Dosage: STRENGTH: 4MG, ACCORDING TO HAEMATOLOGY
  6. INSULIN ASPART [Concomitant]
     Active Substance: INSULIN ASPART
     Dosage: ACCORDING TO BLOOD GLUCOSE

REACTIONS (8)
  - Rash pruritic [Unknown]
  - Oedema peripheral [Unknown]
  - Hepatic encephalopathy [Recovering/Resolving]
  - Dysarthria [Unknown]
  - Disturbance in attention [Unknown]
  - Rash [Unknown]
  - Tremor [Unknown]
  - Fatigue [Unknown]
